FAERS Safety Report 4269264-1 (Version None)
Quarter: 2004Q1

REPORT INFORMATION
  Report Type: 
  Country: None (occurrence: None)
  Receive Date: 20040109
  Receipt Date: 20031230
  Transmission Date: 20041129
  Serious: Yes (Hospitalization)
  Sender: FDA-Public Use
  Company Number: US-JNJFOC-20040100199

PATIENT
  Age: 44 Year
  Sex: Female

DRUGS (17)
  1. INFLIXIMAB (INFLIXIMAB ,  RECOMBINANT) LYOPHILIZED POWDER [Suspect]
     Indication: RHEUMATOID ARTHRITIS
     Dosage: INTRAVENOUS
     Route: 042
     Dates: start: 20000324, end: 20020609
  2. PREDNISONE (PREDNSIONE) [Concomitant]
  3. EFFEXOR [Concomitant]
  4. DOXAPIN (DOXEPIN HYDROCHLORIDE) [Concomitant]
  5. METHOTREXATE [Concomitant]
  6. ACCUPRIL [Concomitant]
  7. ALBUTEROL [Concomitant]
  8. FOLIC ACID [Concomitant]
  9. B-12 (CYANOCOBALAMIN) [Concomitant]
  10. MAXALL (RIZATRIPTAN BENZOATE) [Concomitant]
  11. FUROSEMIDE (FUROSEMIDB) [Concomitant]
  12. LANOXIN [Concomitant]
  13. KLOR-CON [Concomitant]
  14. DYAZIDE [Concomitant]
  15. ASPIRIN [Concomitant]
  16. PREMPRO 14/14 [Concomitant]
  17. PREVACID [Concomitant]

REACTIONS (1)
  - CORONARY ARTERY DISEASE [None]
